FAERS Safety Report 24445119 (Version 1)
Quarter: 2024Q4

REPORT INFORMATION
  Report Type: Spontaneous
  Country: US (occurrence: US)
  Receive Date: 20241016
  Receipt Date: 20241016
  Transmission Date: 20250114
  Serious: Yes (Other)
  Sender: MERCK
  Company Number: US-009507513-2410USA003476

PATIENT
  Sex: Female
  Weight: 56.689 kg

DRUGS (2)
  1. KEYTRUDA [Suspect]
     Active Substance: PEMBROLIZUMAB
     Dosage: UNK
     Dates: start: 2023
  2. LENVATINIB MESYLATE [Suspect]
     Active Substance: LENVATINIB MESYLATE
     Indication: Malignant peritoneal neoplasm
     Dosage: 14 MILLIGRAM, QD
     Route: 048
     Dates: start: 202304

REACTIONS (2)
  - Type 1 diabetes mellitus [Unknown]
  - Product use issue [Unknown]
